FAERS Safety Report 17862121 (Version 4)
Quarter: 2020Q3

REPORT INFORMATION
  Report Type: Spontaneous
  Country: PL (occurrence: PL)
  Receive Date: 20200604
  Receipt Date: 20200721
  Transmission Date: 20201103
  Serious: Yes (Hospitalization, Other)
  Sender: FDA-Public Use
  Company Number: NVSC2020PL153991

PATIENT
  Age: 68 Year
  Sex: Female

DRUGS (16)
  1. SODIUM PERCHLORATE [Concomitant]
     Active Substance: SODIUM PERCHLORATE
     Dosage: 3 GTT, QD (15 DROPS, 3X PER DAY) (1/12 MILLILITRE)
     Route: 065
  2. SODIUM PERCHLORATE [Concomitant]
     Active Substance: SODIUM PERCHLORATE
     Indication: PRODUCT USED FOR UNKNOWN INDICATION
     Dosage: 3 UNK, QD (10 DROPS, 3X PER DAY)
     Route: 065
  3. HYDROCORTISONE. [Concomitant]
     Active Substance: HYDROCORTISONE
     Indication: PRODUCT USED FOR UNKNOWN INDICATION
     Dosage: 100 MG, QD
     Route: 048
  4. HYDROCORTISONE. [Concomitant]
     Active Substance: HYDROCORTISONE
     Dosage: 100 MG, QD
     Route: 042
  5. ACETYLSALICYLIC ACID [Suspect]
     Active Substance: ASPIRIN
     Indication: PRODUCT USED FOR UNKNOWN INDICATION
     Dosage: 75 MG, QD
     Route: 065
  6. THIAMAZOLE [Concomitant]
     Active Substance: METHIMAZOLE
     Dosage: 40 MG, 3X PER DAY
     Route: 048
  7. THIAMAZOLE [Concomitant]
     Active Substance: METHIMAZOLE
     Dosage: 20 MG, TID
     Route: 065
  8. SODIUM PERCHLORATE [Concomitant]
     Active Substance: SODIUM PERCHLORATE
     Dosage: 15 DROPS, 3X PER DAYUNK
     Route: 065
  9. ROSUVASTATIN. [Suspect]
     Active Substance: ROSUVASTATIN
     Indication: PRODUCT USED FOR UNKNOWN INDICATION
     Dosage: 10 MG, QD
     Route: 065
  10. METOPROLOL. [Concomitant]
     Active Substance: METOPROLOL
     Dosage: 200 MG, QD
     Route: 065
  11. SODIUM PERCHLORATE [Concomitant]
     Active Substance: SODIUM PERCHLORATE
     Dosage: 10 DROPS, 3X PER DAY
     Route: 065
  12. HYDROCORTISONE. [Concomitant]
     Active Substance: HYDROCORTISONE
     Dosage: 100 MG, TID
     Route: 065
  13. RAMIPRIL. [Suspect]
     Active Substance: RAMIPRIL
     Indication: PRODUCT USED FOR UNKNOWN INDICATION
     Dosage: 5 MG, QD
     Route: 065
  14. THIAMAZOLE [Concomitant]
     Active Substance: METHIMAZOLE
     Dosage: 120 MG, QD (40 MG, 3X PER DAY )
     Route: 042
  15. METOPROLOL. [Concomitant]
     Active Substance: METOPROLOL
     Indication: PRODUCT USED FOR UNKNOWN INDICATION
     Dosage: 25 MG, TID (75 MG, QD)
     Route: 065
  16. THIAMAZOLE [Concomitant]
     Active Substance: METHIMAZOLE
     Indication: PRODUCT USED FOR UNKNOWN INDICATION
     Dosage: 20 MG, QD
     Route: 065

REACTIONS (6)
  - Hyperthyroidism [Recovered/Resolved]
  - Peripheral ischaemia [Recovered/Resolved]
  - Psychomotor hyperactivity [Unknown]
  - Necrosis [Unknown]
  - Blood thyroid stimulating hormone [Unknown]
  - Tachycardia [Unknown]
